FAERS Safety Report 21334506 (Version 2)
Quarter: 2022Q4

REPORT INFORMATION
  Report Type: Spontaneous
  Country: US (occurrence: US)
  Receive Date: 20220914
  Receipt Date: 20221220
  Transmission Date: 20230113
  Serious: Yes (Hospitalization, Other)
  Sender: FDA-Public Use
  Company Number: US-BRISTOL-MYERS SQUIBB COMPANY-2022-105264

PATIENT
  Age: 74 Year
  Sex: Male
  Weight: 105.69 kg

DRUGS (2)
  1. REVLIMID [Suspect]
     Active Substance: LENALIDOMIDE
     Indication: Plasma cell myeloma
     Dosage: DAY 1-21 Q 28 DAYS
     Route: 048
     Dates: start: 20220101, end: 20220701
  2. REVLIMID [Suspect]
     Active Substance: LENALIDOMIDE
     Indication: Plasma cell myeloma
     Dosage: DAY 1-21 Q 28 DAYS
     Route: 048
     Dates: start: 20220915

REACTIONS (1)
  - Bladder cancer [Unknown]
